FAERS Safety Report 13429995 (Version 1)
Quarter: 2017Q2

REPORT INFORMATION
  Report Type: Spontaneous
  Country: US (occurrence: US)
  Receive Date: 20170411
  Receipt Date: 20170411
  Transmission Date: 20170830
  Serious: Yes (Hospitalization)
  Sender: FDA-Public Use
  Company Number: None

PATIENT
  Age: 48 Year
  Sex: Male
  Weight: 100 kg

DRUGS (1)
  1. INVOKANA [Suspect]
     Active Substance: CANAGLIFLOZIN
     Indication: TYPE 2 DIABETES MELLITUS
     Route: 048

REACTIONS (6)
  - Escherichia urinary tract infection [None]
  - Testicular pain [None]
  - Renal pain [None]
  - Kidney infection [None]
  - Testicular swelling [None]
  - Pyrexia [None]

NARRATIVE: CASE EVENT DATE: 20170402
